FAERS Safety Report 15337314 (Version 2)
Quarter: 2018Q3

REPORT INFORMATION
  Report Type: Spontaneous
  Country: MY (occurrence: MY)
  Receive Date: 20180831
  Receipt Date: 20180905
  Transmission Date: 20181010
  Serious: Yes (Life-Threatening, Hospitalization, Other)
  Sender: FDA-Public Use
  Company Number: MY-ALVOGEN-2018-ALVOGEN-097246

PATIENT
  Age: 50 Year
  Sex: Male
  Weight: 70 kg

DRUGS (2)
  1. ATENOLOL. [Suspect]
     Active Substance: ATENOLOL
     Indication: HYPERTENSION
     Route: 048
  2. CLOBAZAM [Suspect]
     Active Substance: CLOBAZAM
     Indication: ANXIETY
     Dosage: IN TOTAL
     Route: 048

REACTIONS (15)
  - Diarrhoea [Unknown]
  - Lethargy [Unknown]
  - Overdose [Unknown]
  - Dizziness [Unknown]
  - Haemodynamic instability [Recovered/Resolved]
  - Hyperkalaemia [Recovered/Resolved]
  - Oliguria [Recovered/Resolved]
  - Palpitations [Unknown]
  - Metabolic acidosis [Recovered/Resolved]
  - Lactic acidosis [Recovered/Resolved]
  - Acute hepatic failure [Unknown]
  - Hypotension [Recovered/Resolved]
  - Urine output decreased [Recovering/Resolving]
  - Hypokalaemia [Recovered/Resolved]
  - Syncope [Unknown]
